FAERS Safety Report 10258373 (Version 6)
Quarter: 2015Q3

REPORT INFORMATION
  Report Type: Spontaneous
  Country: US (occurrence: US)
  Receive Date: 20140625
  Receipt Date: 20150814
  Transmission Date: 20151125
  Serious: Yes (Other)
  Sender: FDA-Public Use
  Company Number: US-PFIZER INC-2014170883

PATIENT
  Age: 62 Year
  Sex: Female

DRUGS (3)
  1. PREMARIN [Suspect]
     Active Substance: ESTROGENS, CONJUGATED
     Indication: HOT FLUSH
  2. PREMARIN [Suspect]
     Active Substance: ESTROGENS, CONJUGATED
     Indication: METRORRHAGIA
     Dosage: 0.425 UNK, 1X/DAY
     Dates: start: 1990
  3. PREMARIN [Suspect]
     Active Substance: ESTROGENS, CONJUGATED
     Indication: HORMONE REPLACEMENT THERAPY
     Dosage: 0.425 UNK, UNK

REACTIONS (4)
  - Hypoacusis [Unknown]
  - Influenza [Unknown]
  - Lower limb fracture [Unknown]
  - Nervous system disorder [Unknown]
